FAERS Safety Report 21505502 (Version 1)
Quarter: 2022Q4

REPORT INFORMATION
  Report Type: Spontaneous
  Country: DE (occurrence: DE)
  Receive Date: 20221026
  Receipt Date: 20221026
  Transmission Date: 20230113
  Serious: Yes (Hospitalization)
  Sender: FDA-Public Use
  Company Number: DE-ADRED-06691-01

PATIENT
  Age: 39 Year
  Sex: Female
  Weight: 92 kg

DRUGS (6)
  1. CYCLOPHOSPHAMIDE [Suspect]
     Active Substance: CYCLOPHOSPHAMIDE
     Indication: Product used for unknown indication
     Dosage: PRN, ACCORDING TO SCHEDULE, SOLUTION FOR INJECTION/INFUSION
     Route: 042
  2. EPIRUBICIN [Suspect]
     Active Substance: EPIRUBICIN
     Indication: Product used for unknown indication
     Dosage: PRN, ACCORDING TO SCHEDULE
     Route: 042
  3. PANTOPRAZOLE [Concomitant]
     Active Substance: PANTOPRAZOLE
     Indication: Product used for unknown indication
     Dosage: 40 MG, PRN, 1-0-0-0,
     Route: 048
  4. Fungizid-ratiopharm [Concomitant]
     Indication: Product used for unknown indication
     Dosage: PRN,
     Route: 067
  5. LEVOTHYROXINE SODIUM [Concomitant]
     Active Substance: LEVOTHYROXINE SODIUM
     Indication: Product used for unknown indication
     Dosage: PRN, 25 MCG, 1-0-0-0
     Route: 048
  6. POTASSIUM IODIDE [Concomitant]
     Active Substance: POTASSIUM IODIDE
     Indication: Product used for unknown indication
     Dosage: 200 MCG, 1-0-0-0,
     Route: 048

REACTIONS (2)
  - Musculoskeletal pain [Unknown]
  - Dyspnoea [Unknown]
